FAERS Safety Report 21469083 (Version 1)
Quarter: 2022Q4

REPORT INFORMATION
  Report Type: Other
  Country: CA (occurrence: CA)
  Receive Date: 20221018
  Receipt Date: 20221018
  Transmission Date: 20230113
  Serious: Yes (Hospitalization, Other)
  Sender: FDA-Public Use
  Company Number: CA-APOTEX-2022AP014225

PATIENT
  Age: 15 Year
  Sex: Female
  Weight: 54 kg

DRUGS (1)
  1. DOXYCYCLINE [Suspect]
     Active Substance: DOXYCYCLINE
     Indication: Acne
     Dosage: 100 MILLIGRAM, QD
     Route: 048

REACTIONS (5)
  - Chest discomfort [Recovered/Resolved]
  - Feeding disorder [Recovered/Resolved]
  - Musculoskeletal pain [Recovered/Resolved]
  - Oesophageal ulcer [Recovered/Resolved]
  - Dysphagia [Recovered/Resolved]
